FAERS Safety Report 20060528 (Version 4)
Quarter: 2022Q3

REPORT INFORMATION
  Report Type: Report from Study
  Country: US (occurrence: US)
  Receive Date: 20211112
  Receipt Date: 20220819
  Transmission Date: 20221027
  Serious: Yes (Other)
  Sender: FDA-Public Use
  Company Number: US-ABBVIE-21K-163-4153457-00

PATIENT
  Sex: Female
  Weight: 45.854 kg

DRUGS (4)
  1. SKYRIZI [Suspect]
     Active Substance: RISANKIZUMAB-RZAA
     Indication: Psoriasis
     Route: 058
     Dates: start: 2022
  2. HUMIRA [Suspect]
     Active Substance: ADALIMUMAB
     Indication: Product used for unknown indication
     Route: 058
  3. METHOTREXATE [Suspect]
     Active Substance: METHOTREXATE
     Indication: Product used for unknown indication
     Route: 065
  4. LIPITOR [Suspect]
     Active Substance: ATORVASTATIN CALCIUM
     Indication: Product used for unknown indication
     Route: 065

REACTIONS (9)
  - Coronary artery occlusion [Unknown]
  - Blood cholesterol increased [Not Recovered/Not Resolved]
  - Calcinosis [Unknown]
  - Therapeutic product effect decreased [Unknown]
  - Psoriasis [Unknown]
  - Nausea [Unknown]
  - Adverse drug reaction [Unknown]
  - Intentional product misuse [Unknown]
  - Unevaluable event [Unknown]
